FAERS Safety Report 10576242 (Version 1)
Quarter: 2014Q4

REPORT INFORMATION
  Report Type: Spontaneous
  Country: US (occurrence: None)
  Receive Date: 20141110
  Receipt Date: 20141110
  Transmission Date: 20150529
  Serious: Yes (Other)
  Sender: FDA-Public Use
  Company Number: None

PATIENT
  Age: 35 Year
  Sex: Female
  Weight: 90.72 kg

DRUGS (1)
  1. GENERIC ADDERALL [Suspect]
     Active Substance: AMPHETAMINE ASPARTATE\AMPHETAMINE SULFATE\DEXTROAMPHETAMINE SACCHARATE\DEXTROAMPHETAMINE SULFATE
     Indication: ATTENTION DEFICIT/HYPERACTIVITY DISORDER
     Route: 048
     Dates: start: 20140821, end: 20140921

REACTIONS (10)
  - Intranasal hypoaesthesia [None]
  - Somnolence [None]
  - Product quality issue [None]
  - Hypoaesthesia [None]
  - Hypoaesthesia eye [None]
  - Disturbance in attention [None]
  - Product substitution issue [None]
  - Lethargy [None]
  - Hypoaesthesia oral [None]
  - Nausea [None]
